FAERS Safety Report 4850578-9 (Version None)
Quarter: 2005Q4

REPORT INFORMATION
  Report Type: 
  Country: None (occurrence: None)
  Receive Date: 20051212
  Receipt Date: 20051128
  Transmission Date: 20060501
  Serious: Yes (Life-Threatening)
  Sender: FDA-Public Use
  Company Number: FR-JNJFOC-20040203507

PATIENT
  Age: 57 Year
  Sex: Female

DRUGS (5)
  1. REMICADE [Suspect]
     Indication: RHEUMATOID ARTHRITIS
     Route: 042
     Dates: start: 20021210, end: 20030706
  2. LEVOTHYROX [Concomitant]
     Dosage: DAILY DOSE
     Route: 065
  3. NAVAQUINE [Concomitant]
     Indication: SYSTEMIC LUPUS ERYTHEMATOSUS
     Route: 065
  4. NOVATREX [Concomitant]
     Indication: RHEUMATOID ARTHRITIS
     Route: 065
     Dates: start: 20021110, end: 20030718
  5. METHOTREXATE [Concomitant]
     Route: 065

REACTIONS (10)
  - APLASTIC ANAEMIA [None]
  - CRYOGLOBULINAEMIA [None]
  - DEHYDRATION [None]
  - HYPONATRAEMIA [None]
  - HYPOPROTEINAEMIA [None]
  - INFLAMMATION [None]
  - LYMPHOPENIA [None]
  - NEUTROPENIA [None]
  - STAPHYLOCOCCAL SEPSIS [None]
  - SYSTEMIC LUPUS ERYTHEMATOSUS [None]
